FAERS Safety Report 6151890-6 (Version None)
Quarter: 2009Q2

REPORT INFORMATION
  Report Type: 
  Country: None (occurrence: None)
  Receive Date: 20090410
  Receipt Date: 20090330
  Transmission Date: 20091009
  Serious: Yes (Hospitalization, Other)
  Sender: FDA-Public Use
  Company Number: CA-JNJFOC-20090400484

PATIENT
  Sex: Female
  Weight: 68 kg

DRUGS (4)
  1. REMICADE [Suspect]
     Dosage: 100 MG VIAL
     Route: 042
  2. REMICADE [Suspect]
     Indication: CROHN'S DISEASE
     Route: 042
  3. SOLU-CORTEF [Concomitant]
     Indication: PREMEDICATION
     Route: 042
  4. AERIUS [Concomitant]
     Indication: PREMEDICATION
     Route: 048

REACTIONS (11)
  - DYSPHAGIA [None]
  - DYSPNOEA [None]
  - EAR PAIN [None]
  - FATIGUE [None]
  - LYMPHADENOPATHY [None]
  - NAUSEA [None]
  - OEDEMA [None]
  - PAIN [None]
  - PYREXIA [None]
  - RECTAL DISCHARGE [None]
  - SWELLING [None]
